FAERS Safety Report 11946401 (Version 1)
Quarter: 2016Q1

REPORT INFORMATION
  Report Type: Spontaneous
  Country: US (occurrence: US)
  Receive Date: 20160125
  Receipt Date: 20160125
  Transmission Date: 20160526
  Serious: No
  Sender: FDA-Public Use
  Company Number: US-JNJFOC-20160101587

PATIENT
  Age: 63 Year
  Sex: Male
  Weight: 74.84 kg

DRUGS (3)
  1. MENS ROGAINE EXTRA STRENGTH [Suspect]
     Active Substance: MINOXIDIL
     Indication: ALOPECIA
     Route: 061
  2. MENS ROGAINE EXTRA STRENGTH [Suspect]
     Active Substance: MINOXIDIL
     Indication: ALOPECIA
     Dosage: 1/2 CAPFUL
     Route: 061
     Dates: start: 201512
  3. CHOLESTEROL [Concomitant]
     Active Substance: CHOLESTEROL
     Indication: BLOOD CHOLESTEROL INCREASED
     Route: 065

REACTIONS (4)
  - Application site dryness [Not Recovered/Not Resolved]
  - Dry skin [Not Recovered/Not Resolved]
  - Eye swelling [Not Recovered/Not Resolved]
  - Pruritus [Recovering/Resolving]
